FAERS Safety Report 16064483 (Version 1)
Quarter: 2019Q1

REPORT INFORMATION
  Report Type: Report from Study
  Country: BR (occurrence: BR)
  Receive Date: 20190312
  Receipt Date: 20190312
  Transmission Date: 20190418
  Serious: Yes (Life-Threatening, Hospitalization)
  Sender: FDA-Public Use
  Company Number: PHHY2019BR055723

PATIENT
  Sex: Female
  Weight: 45 kg

DRUGS (1)
  1. ACLASTA [Suspect]
     Active Substance: ZOLEDRONIC ACID
     Indication: OSTEOPOROSIS
     Dosage: 5 MG, Q12MO
     Route: 042
     Dates: start: 201805

REACTIONS (14)
  - Bacteraemia [Recovering/Resolving]
  - Pneumonia [Unknown]
  - Head discomfort [Unknown]
  - Headache [Unknown]
  - Hypoaesthesia [Unknown]
  - Pruritus [Unknown]
  - Depression [Unknown]
  - Liver disorder [Unknown]
  - Skin disorder [Unknown]
  - Herpes zoster [Unknown]
  - Pyrexia [Recovered/Resolved]
  - Fall [Not Recovered/Not Resolved]
  - Weight decreased [Not Recovered/Not Resolved]
  - Cough [Recovered/Resolved]
